FAERS Safety Report 6511436-7 (Version None)
Quarter: 2009Q4

REPORT INFORMATION
  Report Type: 
  Country: None (occurrence: None)
  Receive Date: 20091222
  Receipt Date: 20091215
  Transmission Date: 20100525
  Serious: Yes (Death)
  Sender: FDA-Public Use
  Company Number: FR-SANOFI-AVENTIS-2009SA008897

PATIENT
  Age: 84 Year
  Sex: Female

DRUGS (10)
  1. PLAVIX [Suspect]
     Indication: DRUG USE FOR UNKNOWN INDICATION
     Route: 048
     Dates: end: 20091105
  2. SORIATANE [Suspect]
     Indication: PSORIASIS
     Route: 048
     Dates: start: 20091027, end: 20091102
  3. ATARAX [Suspect]
     Indication: DRUG USE FOR UNKNOWN INDICATION
     Route: 048
     Dates: end: 20091102
  4. EUPRESSYL [Suspect]
     Indication: DRUG USE FOR UNKNOWN INDICATION
     Route: 048
     Dates: end: 20091025
  5. DAFALGAN [Suspect]
     Indication: DRUG USE FOR UNKNOWN INDICATION
     Route: 048
     Dates: start: 20091027, end: 20091102
  6. ACTISKENAN [Suspect]
     Indication: DRUG USE FOR UNKNOWN INDICATION
     Route: 048
     Dates: start: 20091030, end: 20091103
  7. AERIUS [Concomitant]
     Indication: DRUG USE FOR UNKNOWN INDICATION
     Route: 048
     Dates: end: 20091101
  8. DIPROSONE [Concomitant]
     Indication: DRUG USE FOR UNKNOWN INDICATION
     Dates: end: 20091101
  9. DIPROBASE CREAM [Concomitant]
     Indication: DRUG USE FOR UNKNOWN INDICATION
     Route: 003
     Dates: end: 20091101
  10. VASELINE [Concomitant]
     Indication: DRUG USE FOR UNKNOWN INDICATION
     Dates: end: 20091101

REACTIONS (3)
  - ACUTE HEPATIC FAILURE [None]
  - RENAL FAILURE [None]
  - THROMBOCYTOPENIA [None]
